FAERS Safety Report 5362730-7 (Version None)
Quarter: 2007Q2

REPORT INFORMATION
  Report Type: 
  Country: None (occurrence: None)
  Receive Date: 20070612
  Receipt Date: 20070607
  Transmission Date: 20071010
  Serious: Yes (Hospitalization)
  Sender: FDA-Public Use
  Company Number: 1-14979901/MED07114

PATIENT
  Age: 53 Year
  Sex: Female

DRUGS (1)
  1. BACTRIM DS [Suspect]
     Indication: NAIL INFECTION
     Dosage: 2 X 1 DAY, ORAL
     Route: 048
     Dates: start: 19990601, end: 19990601

REACTIONS (19)
  - ANTINUCLEAR ANTIBODY POSITIVE [None]
  - ARTERIAL OCCLUSIVE DISEASE [None]
  - BLINDNESS UNILATERAL [None]
  - COLOUR BLINDNESS [None]
  - HEMIANOPIA [None]
  - LEUKOCYTOCLASTIC VASCULITIS [None]
  - MACULOPATHY [None]
  - OPTIC ATROPHY [None]
  - OPTIC DISC DISORDER [None]
  - PAPILLOEDEMA [None]
  - PUPILLARY REFLEX IMPAIRED [None]
  - RETINAL EXUDATES [None]
  - RETINAL HAEMORRHAGE [None]
  - RETINAL VASCULITIS [None]
  - SCOTOMA [None]
  - SKIN LESION [None]
  - URTICARIA [None]
  - VISUAL ACUITY REDUCED [None]
  - VISUAL FIELD DEFECT [None]
